FAERS Safety Report 9284700 (Version 1)
Quarter: 2013Q2

REPORT INFORMATION
  Report Type: Spontaneous
  Country: MY (occurrence: MY)
  Receive Date: 20130513
  Receipt Date: 20130513
  Transmission Date: 20140414
  Serious: Yes (Other)
  Sender: FDA-Public Use
  Company Number: MY-RANBAXY-2013R3-68633

PATIENT
  Age: 22 Year
  Sex: Female

DRUGS (5)
  1. CLAVAM [Suspect]
     Indication: PNEUMONIA
     Dosage: 2 G DAILY
     Route: 042
  2. AXCEL ERYTHROMYCIN ES [Suspect]
     Indication: PNEUMONIA
     Dosage: 2 GM DAILY
     Route: 065
  3. LAMOTRIGINE [Concomitant]
     Indication: PRODUCT USED FOR UNKNOWN INDICATION
     Dosage: UNK
     Route: 065
  4. CARBAMAZEPINE [Concomitant]
     Indication: PRODUCT USED FOR UNKNOWN INDICATION
     Route: 065
  5. SODIUM VALPROATE [Concomitant]
     Indication: PRODUCT USED FOR UNKNOWN INDICATION
     Route: 065

REACTIONS (3)
  - Pruritus [Recovered/Resolved]
  - Rash maculo-papular [Recovered/Resolved]
  - Face oedema [Recovered/Resolved]
